FAERS Safety Report 19397257 (Version 1)
Quarter: 2021Q2

REPORT INFORMATION
  Report Type: Spontaneous
  Country: DE (occurrence: DE)
  Receive Date: 20210609
  Receipt Date: 20210609
  Transmission Date: 20210717
  Serious: Yes (Hospitalization, Other)
  Sender: FDA-Public Use
  Company Number: DE-009507513-2106DEU002121

PATIENT
  Age: 79 Year
  Sex: Male

DRUGS (3)
  1. CARBOPLATIN. [Suspect]
     Active Substance: CARBOPLATIN
     Indication: LUNG NEOPLASM MALIGNANT
     Dosage: 1 CYCLE
  2. PEMBROLIZUMAB. [Suspect]
     Active Substance: PEMBROLIZUMAB
     Indication: LUNG NEOPLASM MALIGNANT
     Dosage: UNK
  3. PACLITAXEL. [Suspect]
     Active Substance: PACLITAXEL
     Indication: LUNG NEOPLASM MALIGNANT
     Dosage: 1 CYCLE

REACTIONS (5)
  - Neutropenia [Unknown]
  - Malignant neoplasm progression [Unknown]
  - Thrombocytopenia [Unknown]
  - Blood thyroid stimulating hormone abnormal [Unknown]
  - Fatigue [Unknown]

NARRATIVE: CASE EVENT DATE: 202001
